FAERS Safety Report 14030935 (Version 1)
Quarter: 2017Q4

REPORT INFORMATION
  Report Type: Other
  Country: DE (occurrence: DE)
  Receive Date: 20171002
  Receipt Date: 20171002
  Transmission Date: 20180321
  Serious: Yes (Hospitalization)
  Sender: FDA-Public Use
  Company Number: DE-VELOXIS PHARMACEUTICALS-2028447

PATIENT
  Age: 14 Month
  Weight: 8 kg

DRUGS (2)
  1. NUTRIENTS NOS [Suspect]
     Active Substance: UNSPECIFIED INGREDIENT
  2. ENVARSUS XR [Suspect]
     Active Substance: TACROLIMUS
     Indication: LIVER TRANSPLANT

REACTIONS (3)
  - Intentional product use issue [Unknown]
  - Acute kidney injury [Unknown]
  - Renal tubular acidosis [Unknown]
